FAERS Safety Report 4748415-6 (Version None)
Quarter: 2005Q3

REPORT INFORMATION
  Report Type: 
  Country: None (occurrence: None)
  Receive Date: 20050818
  Receipt Date: 20050801
  Transmission Date: 20060218
  Serious: No
  Sender: FDA-Public Use
  Company Number: 2005PV000503

PATIENT
  Age: 70 Year
  Sex: Female
  Weight: 62.8232 kg

DRUGS (13)
  1. SYMLIN [Suspect]
     Indication: DIABETES MELLITUS INSULIN-DEPENDENT
     Dosage: 60 UG; TID; SC
     Route: 058
     Dates: start: 20050607
  2. LEVOTHYROXINE [Concomitant]
  3. HYZAAR [Concomitant]
  4. EVISTA [Concomitant]
  5. CALCIUM/VITAMIN D NOS [Concomitant]
  6. FISH OIL [Concomitant]
  7. IBUPROFEN [Concomitant]
  8. TYLENOL [Concomitant]
  9. GRAPE SEED [Concomitant]
  10. EYECAPS [Concomitant]
  11. NOVOLOG [Concomitant]
  12. LEVAQUIN [Concomitant]
  13. COZAAR [Concomitant]

REACTIONS (15)
  - BLOOD GLUCOSE INCREASED [None]
  - CONFUSIONAL STATE [None]
  - DISTURBANCE IN ATTENTION [None]
  - DRUG ADMINISTRATION ERROR [None]
  - DYSSTASIA [None]
  - FATIGUE [None]
  - HYPOGLYCAEMIA [None]
  - MEDICAL DEVICE COMPLICATION [None]
  - OVERDOSE [None]
  - PAIN [None]
  - SICK RELATIVE [None]
  - SOMNOLENCE [None]
  - STRESS [None]
  - WEIGHT DECREASED [None]
  - WHITE BLOOD CELLS URINE [None]
